FAERS Safety Report 21867159 (Version 1)
Quarter: 2023Q1

REPORT INFORMATION
  Report Type: Spontaneous
  Country: US (occurrence: US)
  Receive Date: 20230116
  Receipt Date: 20230116
  Transmission Date: 20230418
  Serious: Yes (Other)
  Sender: FDA-Public Use
  Company Number: US-CIPLA LTD.-2023US00170

PATIENT
  Age: 42 Year
  Sex: Male

DRUGS (4)
  1. EFAVIRENZ\EMTRICITABINE\TENOFOVIR DISOPROXIL FUMARATE [Suspect]
     Active Substance: EFAVIRENZ\EMTRICITABINE\TENOFOVIR DISOPROXIL FUMARATE
     Indication: HIV infection
     Dosage: 1 DOSAGE FORM, QD, 600/200/300 MILLIGRAM,
     Route: 065
  2. WARFARIN [Interacting]
     Active Substance: WARFARIN
     Indication: Deep vein thrombosis
     Dosage: UNK, 50 MILLIGRAM, WEEKLY FOR APPROXIMATELY 2 YEARS (7.1 MG DAILY DOSE))
     Route: 065
  3. WARFARIN [Interacting]
     Active Substance: WARFARIN
     Dosage: UNK, 80 MILLIGRAM, WEEKLY (11.4 MG DAILY DOSE)
     Route: 065
  4. COBICISTAT\ELVITEGRAVIR\EMTRICITABINE\TENOFOVIR [Interacting]
     Active Substance: COBICISTAT\ELVITEGRAVIR\EMTRICITABINE\TENOFOVIR
     Indication: HIV infection
     Dosage: 1 DOSAGE FORM, QD, 150MG/150MG/200/300 MG
     Route: 065

REACTIONS (3)
  - Anticoagulation drug level below therapeutic [Unknown]
  - Drug interaction [Unknown]
  - Dysphoria [Unknown]
